FAERS Safety Report 22029082 (Version 1)
Quarter: 2023Q1

REPORT INFORMATION
  Report Type: Report from Study
  Country: US (occurrence: US)
  Receive Date: 20230223
  Receipt Date: 20230223
  Transmission Date: 20230417
  Serious: Yes (Life-Threatening, Hospitalization, Other)
  Sender: FDA-Public Use
  Company Number: US-ABBVIE-4315053

PATIENT
  Age: 66 Year
  Sex: Female
  Weight: 55 kg

DRUGS (3)
  1. HUMIRA [Suspect]
     Active Substance: ADALIMUMAB
     Indication: Psoriatic arthropathy
     Route: 058
     Dates: start: 20210217, end: 20221119
  2. HUMIRA [Suspect]
     Active Substance: ADALIMUMAB
     Indication: Uveitis
  3. PREMARIN [Concomitant]
     Active Substance: ESTROGENS, CONJUGATED
     Indication: Hormone therapy
     Dates: start: 20080221

REACTIONS (13)
  - Oxygen saturation decreased [Recovering/Resolving]
  - Pulmonary fibrosis [Not Recovered/Not Resolved]
  - Malaise [Recovered/Resolved]
  - Lung opacity [Recovering/Resolving]
  - Tachycardia [Recovered/Resolved]
  - Asthenia [Recovered/Resolved]
  - Pneumonia legionella [Recovering/Resolving]
  - Immunodeficiency [Recovering/Resolving]
  - Illness [Recovered/Resolved]
  - Pyrexia [Recovered/Resolved]
  - Tachycardia [Recovered/Resolved]
  - Tachycardia [Recovered/Resolved]
  - Asthma [Unknown]

NARRATIVE: CASE EVENT DATE: 20220207
